FAERS Safety Report 5264228-3 (Version None)
Quarter: 2007Q1

REPORT INFORMATION
  Report Type: 
  Country: None (occurrence: None)
  Receive Date: 20070313
  Receipt Date: 20070207
  Transmission Date: 20070707
  Serious: Yes (Death, Life-Threatening, Hospitalization)
  Sender: FDA-Public Use
  Company Number: US-SHR-US-2006-036364

PATIENT
  Age: 60 Year
  Sex: Male
  Weight: 113 kg

DRUGS (5)
  1. ULTRAVIST 300 [Suspect]
     Dosage: 100 ML, 1 DOSE
     Route: 042
     Dates: start: 20061106, end: 20061106
  2. TRIAMTERENE [Concomitant]
  3. QUINAPRIL [Concomitant]
  4. HYDROCHLOROTHIAZIDE [Concomitant]
  5. CONTRAST MEDIA [Concomitant]
     Dosage: UNK, 1 DOSE
     Route: 048
     Dates: start: 20061106, end: 20061106

REACTIONS (4)
  - FOAMING AT MOUTH [None]
  - MICTURITION URGENCY [None]
  - SPEECH DISORDER [None]
  - UNEVALUABLE EVENT [None]
